FAERS Safety Report 8845284 (Version 1)
Quarter: 2012Q4

REPORT INFORMATION
  Report Type: 
  Country: CH (occurrence: CH)
  Receive Date: 20121017
  Receipt Date: 20121017
  Transmission Date: 20130627
  Serious: Yes (Hospitalization)
  Sender: FDA-Public Use
  Company Number: CH-ASTRAZENECA-2012SE77676

PATIENT
  Age: 78 Year
  Sex: Male

DRUGS (18)
  1. BUPIVACAINE [Suspect]
     Indication: ANAESTHESIA
     Dates: start: 20120530, end: 20120530
  2. NEXIUM [Suspect]
     Route: 048
     Dates: start: 200904, end: 20120709
  3. PROPOFOL [Suspect]
     Indication: ANAESTHESIA
     Route: 042
     Dates: start: 20120530, end: 20120530
  4. TRAMADOL [Suspect]
     Indication: PAIN
     Route: 048
     Dates: start: 20120611
  5. TRAMADOL [Suspect]
     Indication: PAIN
     Route: 048
     Dates: end: 20120704
  6. PRAVASTATIN [Suspect]
     Indication: HYPERCHOLESTEROLAEMIA
     Route: 048
     Dates: start: 200703, end: 20120709
  7. LISINOPRIL AND HYDROCHLOROTHIAZIDE [Concomitant]
     Dosage: 20/12.5 MG DAILY
     Route: 048
     Dates: start: 200801
  8. TAMSULOSINE [Concomitant]
  9. ACETYLSALICYLIC ACID [Concomitant]
     Dates: start: 200612
  10. CLOPIDOGREL [Concomitant]
     Dates: start: 200703
  11. METOPROLOL [Concomitant]
     Dates: start: 200703
  12. LANTUS [Concomitant]
  13. SUFENTANIL [Concomitant]
  14. PHENYLEPHRINE [Concomitant]
  15. EPHEDRINE [Concomitant]
  16. NITROGLYCERINE [Concomitant]
  17. VANCOMYCINE [Concomitant]
  18. PHENTANYL [Concomitant]

REACTIONS (1)
  - Cholestatic liver injury [Recovering/Resolving]
